FAERS Safety Report 16367092 (Version 1)
Quarter: 2019Q2

REPORT INFORMATION
  Report Type: Spontaneous
  Country: US (occurrence: US)
  Receive Date: 20190529
  Receipt Date: 20190529
  Transmission Date: 20190711
  Serious: No
  Sender: FDA-Public Use
  Company Number: US-SA-2019SA143053

PATIENT
  Age: 57 Year
  Sex: Female
  Weight: 72.56 kg

DRUGS (12)
  1. ATORVASTATIN [Concomitant]
     Active Substance: ATORVASTATIN
     Dosage: 2 TAB, QD
     Route: 048
     Dates: start: 20190227
  2. FABRAZYME [Suspect]
     Active Substance: AGALSIDASE BETA
     Indication: FABRY^S DISEASE
     Dosage: 70 MG, QOW
     Route: 041
  3. ASPIRIN EC [Concomitant]
     Active Substance: ASPIRIN
     Dosage: 1 TAB, QD
     Route: 048
     Dates: start: 20140624
  4. SODIUM CHLORIDE. [Concomitant]
     Active Substance: SODIUM CHLORIDE
     Dosage: 0.9 %, UNK
     Route: 042
     Dates: start: 20181026
  5. STERILE WATER [Concomitant]
     Active Substance: WATER
     Dosage: 14 ML, UNK
     Route: 042
     Dates: start: 20181026
  6. CALCIUM [Concomitant]
     Active Substance: CALCIUM
     Dosage: 1 TAB, QD
     Route: 048
     Dates: start: 20161121
  7. NORMAL SALINE [Concomitant]
     Active Substance: SODIUM CHLORIDE
     Dosage: 0.9 %, UNK
     Route: 042
     Dates: start: 20181026
  8. EPINEPHRINE. [Concomitant]
     Active Substance: EPINEPHRINE
     Indication: ANAPHYLACTIC REACTION
     Dosage: 0.3 MG, PRN
     Route: 030
     Dates: start: 20181026
  9. PAXIL [PIROXICAM] [Concomitant]
     Active Substance: PIROXICAM
     Dosage: 1 TAB, QD
     Route: 048
     Dates: start: 20140303
  10. TRIPLE OMEGA 3 6 9 [Concomitant]
     Dosage: 1 CAP, QD
     Route: 048
     Dates: start: 20161121
  11. CARBAMAZEPINE. [Concomitant]
     Active Substance: CARBAMAZEPINE
     Dosage: 1 TAB, QD
     Route: 048
     Dates: start: 20141117
  12. SYNTHROID [Concomitant]
     Active Substance: LEVOTHYROXINE SODIUM
     Dosage: 1 TAB,  QD
     Route: 048
     Dates: start: 20140303

REACTIONS (1)
  - Toothache [Unknown]
